FAERS Safety Report 10174296 (Version 1)
Quarter: 2014Q2

REPORT INFORMATION
  Report Type: Spontaneous
  Country: US (occurrence: None)
  Receive Date: 20140514
  Receipt Date: 20140514
  Transmission Date: 20141212
  Serious: No
  Sender: FDA-Public Use
  Company Number: None

PATIENT
  Age: 67 Year
  Sex: Female

DRUGS (6)
  1. AFINITOR [Suspect]
     Indication: BREAST CANCER
     Route: 048
  2. EXEMESTANE [Suspect]
     Indication: BREAST CANCER
     Route: 048
  3. SYNTHROID [Concomitant]
  4. LIPITOR [Concomitant]
  5. BISOPRL-HCTZ [Concomitant]
  6. METFORMIN [Concomitant]

REACTIONS (2)
  - Fatigue [None]
  - Ageusia [None]
